FAERS Safety Report 8340888-5 (Version None)
Quarter: 2012Q2

REPORT INFORMATION
  Report Type: 
  Country: None (occurrence: None)
  Receive Date: 20120503
  Receipt Date: 20120418
  Transmission Date: 20120825
  Serious: Yes (Hospitalization)
  Sender: FDA-Public Use
  Company Number: GER/IND/12/0024125

PATIENT
  Age: 11 Year
  Sex: Male
  Weight: 40 kg

DRUGS (1)
  1. PANTOPRAZOLE [Suspect]
     Indication: GASTROOESOPHAGEAL REFLUX DISEASE
     Dosage: 40 MG, FROM THE SECOND WEEK

REACTIONS (4)
  - PYREXIA [None]
  - PANCREATITIS ACUTE [None]
  - EMOTIONAL DISTRESS [None]
  - ANXIETY [None]
